FAERS Safety Report 6711606-9 (Version None)
Quarter: 2010Q2

REPORT INFORMATION
  Report Type: 
  Country: None (occurrence: None)
  Receive Date: 20100505
  Receipt Date: 20090921
  Transmission Date: 20101027
  Serious: Yes (Other)
  Sender: FDA-Public Use
  Company Number: US-BAYER-200930460NA

PATIENT
  Age: 47 Year
  Sex: Female

DRUGS (1)
  1. BETASERON [Suspect]
     Indication: MULTIPLE SCLEROSIS
     Route: 058
     Dates: start: 20090722, end: 20090809

REACTIONS (8)
  - CORONARY ARTERY OCCLUSION [None]
  - DYSPNOEA [None]
  - EAR PRURITUS [None]
  - INJECTION SITE ERYTHEMA [None]
  - INJECTION SITE SWELLING [None]
  - NECK PAIN [None]
  - PAIN IN JAW [None]
  - PHARYNGEAL OEDEMA [None]
